APPROVED DRUG PRODUCT: VANCOMYCIN HYDROCHLORIDE
Active Ingredient: VANCOMYCIN HYDROCHLORIDE
Strength: EQ 1GM BASE/VIAL
Dosage Form/Route: INJECTABLE;INJECTION
Application: A062879 | Product #002
Applicant: HIKMA PHARMACEUTICALS USA INC
Approved: Aug 2, 1988 | RLD: No | RS: No | Type: DISCN